FAERS Safety Report 10071245 (Version 1)
Quarter: 2014Q2

REPORT INFORMATION
  Report Type: Spontaneous
  Country: US (occurrence: US)
  Receive Date: 20140410
  Receipt Date: 20140410
  Transmission Date: 20141212
  Serious: No
  Sender: FDA-Public Use
  Company Number: US-SANOFI-AVENTIS-2013SA021879

PATIENT
  Age: 5 Year
  Sex: Female
  Weight: 19.5 kg

DRUGS (1)
  1. ALLEGRA [Suspect]
     Dosage: ONE TEASPOON DAILY
     Route: 048

REACTIONS (1)
  - Product taste abnormal [Unknown]
